FAERS Safety Report 8995305 (Version 1)
Quarter: 2013Q1

REPORT INFORMATION
  Report Type: Report from Study
  Country: DE (occurrence: DE)
  Receive Date: 20130103
  Receipt Date: 20130103
  Transmission Date: 20140127
  Serious: Yes (Life-Threatening)
  Sender: FDA-Public Use
  Company Number: DE-B.I. PHARMACEUTICALS,INC./RIDGEFIELD-2013-DE-00008DE

PATIENT
  Age: 56 Year
  Sex: Male
  Weight: 98 kg

DRUGS (5)
  1. MICARDIS HCT [Suspect]
     Dosage: 105 ANZ
     Route: 048
     Dates: start: 20121227
  2. VENLAFAXIN [Suspect]
     Dosage: 50 ANZ
     Route: 048
     Dates: start: 20121227
  3. AMLODIPIN [Suspect]
     Dosage: 150 ANZ
     Route: 048
     Dates: start: 20121227
  4. CIPRALEX [Suspect]
     Dosage: 14 ANZ
     Route: 048
     Dates: start: 20121227
  5. ZOPICLONE [Suspect]
     Dosage: 10 MG
     Route: 048
     Dates: start: 20121227

REACTIONS (6)
  - Suicide attempt [Unknown]
  - Cardiovascular insufficiency [Unknown]
  - Hypotension [Unknown]
  - Vomiting [Unknown]
  - Poor quality sleep [Unknown]
  - Incorrect dose administered [None]
